FAERS Safety Report 20672648 (Version 1)
Quarter: 2022Q2

REPORT INFORMATION
  Report Type: Other
  Country: MX (occurrence: None)
  Receive Date: 20220405
  Receipt Date: 20220405
  Transmission Date: 20220721
  Serious: Yes (Disabling, Other)
  Sender: FDA-Public Use
  Company Number: MX-ROCHE-2589035

PATIENT
  Age: 43 Year
  Sex: Female

DRUGS (1)
  1. OCREVUS [Suspect]
     Active Substance: OCRELIZUMAB
     Indication: Multiple sclerosis
     Route: 042
     Dates: start: 20200406

REACTIONS (25)
  - Confusional state [Not Recovered/Not Resolved]
  - Depression [Not Recovered/Not Resolved]
  - Movement disorder [Not Recovered/Not Resolved]
  - Gait disturbance [Not Recovered/Not Resolved]
  - Dysstasia [Not Recovered/Not Resolved]
  - Blindness [Not Recovered/Not Resolved]
  - Tongue biting [Not Recovered/Not Resolved]
  - Irritability [Unknown]
  - Tremor [Unknown]
  - Hypoaesthesia [Unknown]
  - Sensory loss [Unknown]
  - Fall [Unknown]
  - Weight decreased [Unknown]
  - Burning sensation [Unknown]
  - Muscle atrophy [Unknown]
  - Pain in extremity [Unknown]
  - Blindness unilateral [Not Recovered/Not Resolved]
  - Immune system disorder [Not Recovered/Not Resolved]
  - Anxiety [Not Recovered/Not Resolved]
  - Stress [Unknown]
  - Nervousness [Unknown]
  - Monoplegia [Not Recovered/Not Resolved]
  - Paralysis [Not Recovered/Not Resolved]
  - Pain [Not Recovered/Not Resolved]
  - Mobility decreased [Not Recovered/Not Resolved]

NARRATIVE: CASE EVENT DATE: 20201019
